FAERS Safety Report 21875791 (Version 1)
Quarter: 2023Q1

REPORT INFORMATION
  Report Type: Spontaneous
  Country: US (occurrence: US)
  Receive Date: 20230118
  Receipt Date: 20230118
  Transmission Date: 20230417
  Serious: No
  Sender: FDA-Public Use
  Company Number: US-JNJFOC-20230125242

PATIENT
  Age: 20 Year
  Sex: Male

DRUGS (7)
  1. STELARA [Suspect]
     Active Substance: USTEKINUMAB
     Indication: Crohn^s disease
     Route: 058
     Dates: start: 20190717
  2. ALBUTEROL [Concomitant]
     Active Substance: ALBUTEROL
  3. METHOTREXATE [Concomitant]
     Active Substance: METHOTREXATE
     Indication: Product used for unknown indication
  4. PENTASA [Concomitant]
     Active Substance: MESALAMINE
     Indication: Product used for unknown indication
  5. REMICADE [Concomitant]
     Active Substance: INFLIXIMAB
  6. ERGOCALCIFEROL [Concomitant]
     Active Substance: ERGOCALCIFEROL
  7. VITAMINS NOS [Concomitant]
     Active Substance: VITAMINS

REACTIONS (3)
  - Weight fluctuation [Unknown]
  - Abdominal pain [Unknown]
  - Diarrhoea [Unknown]
